FAERS Safety Report 10217052 (Version 1)
Quarter: 2014Q2

REPORT INFORMATION
  Report Type: Spontaneous
  Country: US (occurrence: US)
  Receive Date: 20140604
  Receipt Date: 20140604
  Transmission Date: 20141212
  Serious: Yes (Other)
  Sender: FDA-Public Use
  Company Number: ALCN2014US003260

PATIENT
  Age: 67 Year
  Sex: Male

DRUGS (1)
  1. TRIESENCE [Suspect]
     Dosage: UNK
     Route: 047

REACTIONS (4)
  - Cataract subcapsular [Recovered/Resolved]
  - Cystoid macular oedema [Recovering/Resolving]
  - Intraocular pressure increased [Recovering/Resolving]
  - Off label use [Unknown]
